FAERS Safety Report 25571610 (Version 1)
Quarter: 2025Q3

REPORT INFORMATION
  Report Type: Spontaneous
  Country: US (occurrence: None)
  Receive Date: 20250716
  Receipt Date: 20250716
  Transmission Date: 20251020
  Serious: Yes (Death)
  Sender: FDA-CTU
  Company Number: None

PATIENT
  Sex: Female

DRUGS (10)
  1. GENGRAF [Suspect]
     Active Substance: CYCLOSPORINE
     Indication: Renal transplant
     Route: 048
     Dates: start: 20160408
  2. CALCIUM [Concomitant]
     Active Substance: CALCIUM
  3. CEPHALEXIN TAB [Concomitant]
  4. CIPROFLOXACIN HYDROCHLORIDE [Concomitant]
     Active Substance: CIPROFLOXACIN HYDROCHLORIDE
  5. FOSAMAX TAB [Concomitant]
  6. GENGRAF [Concomitant]
     Active Substance: CYCLOSPORINE
  7. MAGNESIUM TAB 250MG [Concomitant]
  8. SULFAMETHOX POW [Concomitant]
  9. VITAMIN B1 TAB [Concomitant]
  10. ZOLOFT [Concomitant]
     Active Substance: SERTRALINE HYDROCHLORIDE

REACTIONS (1)
  - Death [None]
